FAERS Safety Report 23494500 (Version 1)
Quarter: 2024Q1

REPORT INFORMATION
  Report Type: Spontaneous
  Country: US (occurrence: None)
  Receive Date: 20240206
  Receipt Date: 20240206
  Transmission Date: 20240409
  Serious: Yes (Life-Threatening, Hospitalization, Disabling)
  Sender: FDA-Public Use
  Company Number: None

PATIENT
  Age: 53 Year
  Sex: Female

DRUGS (1)
  1. PAXLOVID [Suspect]
     Active Substance: NIRMATRELVIR\RITONAVIR
     Indication: COVID-19
     Dosage: 2 TABLETS TW3ICE A DAY ORAL?
     Route: 048
     Dates: start: 20240108, end: 20240111

REACTIONS (7)
  - Renal pain [None]
  - Hypertension [None]
  - Tremor [None]
  - Kidney infection [None]
  - Haematological infection [None]
  - Sepsis [None]
  - Near death experience [None]

NARRATIVE: CASE EVENT DATE: 20240111
